FAERS Safety Report 6019250-6 (Version None)
Quarter: 2008Q4

REPORT INFORMATION
  Report Type: 
  Country: None (occurrence: None)
  Receive Date: 20081219
  Receipt Date: 20080728
  Transmission Date: 20090506
  Serious: Yes (Hospitalization)
  Sender: FDA-Public Use
  Company Number: US200807005584

PATIENT
  Sex: Male

DRUGS (1)
  1. HUMULIN R [Suspect]

REACTIONS (3)
  - BLOOD GLUCOSE DECREASED [None]
  - DIABETIC ULCER [None]
  - INFECTION [None]
